FAERS Safety Report 25831799 (Version 1)
Quarter: 2025Q3

REPORT INFORMATION
  Report Type: Spontaneous
  Country: IN (occurrence: IN)
  Receive Date: 20250922
  Receipt Date: 20250922
  Transmission Date: 20251021
  Serious: Yes (Other)
  Sender: GLAND PHARMA LTD
  Company Number: IN-GLANDPHARMA-IN-2025GLNLIT01850

PATIENT
  Age: 54 Year
  Sex: Female

DRUGS (2)
  1. CARBOPLATIN [Suspect]
     Active Substance: CARBOPLATIN
     Indication: Non-small cell lung cancer
     Route: 042
  2. PEMETREXED [Suspect]
     Active Substance: PEMETREXED
     Indication: Non-small cell lung cancer
     Route: 065

REACTIONS (2)
  - Optic ischaemic neuropathy [Recovered/Resolved]
  - Product use in unapproved indication [Unknown]
